FAERS Safety Report 9673376 (Version 3)
Quarter: 2014Q1

REPORT INFORMATION
  Report Type: Spontaneous
  Country: US (occurrence: US)
  Receive Date: 20131106
  Receipt Date: 20140102
  Transmission Date: 20141002
  Serious: No
  Sender: FDA-Public Use
  Company Number: US-AMGEN-USASP2013075409

PATIENT
  Age: 60 Year
  Sex: Female

DRUGS (6)
  1. ENBREL [Suspect]
     Indication: RHEUMATOID ARTHRITIS
     Dosage: 50 MG, QWK
     Route: 065
     Dates: start: 20130924
  2. ENBREL [Suspect]
     Dosage: UNK
     Route: 065
  3. METHOTREXATE [Concomitant]
     Dosage: 8 TABLETS EACH WEEK
     Dates: start: 201308
  4. OXYCODONE [Concomitant]
     Indication: BACK PAIN
     Dosage: UNK
  5. OXYCODONE [Concomitant]
     Indication: MUSCULOSKELETAL PAIN
  6. OXYCODONE [Concomitant]
     Indication: PAIN

REACTIONS (23)
  - Headache [Not Recovered/Not Resolved]
  - Arthralgia [Not Recovered/Not Resolved]
  - Neck pain [Not Recovered/Not Resolved]
  - Pain [Not Recovered/Not Resolved]
  - Back pain [Not Recovered/Not Resolved]
  - Musculoskeletal pain [Not Recovered/Not Resolved]
  - Joint range of motion decreased [Not Recovered/Not Resolved]
  - Musculoskeletal stiffness [Not Recovered/Not Resolved]
  - Feeling abnormal [Recovered/Resolved]
  - Pain in extremity [Not Recovered/Not Resolved]
  - Condition aggravated [Not Recovered/Not Resolved]
  - Finger deformity [Not Recovered/Not Resolved]
  - Fatigue [Not Recovered/Not Resolved]
  - Cough [Not Recovered/Not Resolved]
  - Weight increased [Not Recovered/Not Resolved]
  - Fear of injection [Not Recovered/Not Resolved]
  - Dizziness [Not Recovered/Not Resolved]
  - Pallor [Not Recovered/Not Resolved]
  - Laryngitis [Recovered/Resolved]
  - Nasopharyngitis [Recovered/Resolved]
  - Injection site pruritus [Not Recovered/Not Resolved]
  - Injection site warmth [Not Recovered/Not Resolved]
  - Injection site erythema [Not Recovered/Not Resolved]
